FAERS Safety Report 9677411 (Version 1)
Quarter: 2013Q4

REPORT INFORMATION
  Report Type: Spontaneous
  Country: US (occurrence: US)
  Receive Date: 20131108
  Receipt Date: 20131108
  Transmission Date: 20140711
  Serious: No
  Sender: FDA-Public Use
  Company Number: US-PFIZER INC-2013316383

PATIENT
  Age: 87 Year
  Sex: Female
  Weight: 77.1 kg

DRUGS (1)
  1. NITROGLYCERIN [Suspect]

REACTIONS (1)
  - Drug hypersensitivity [Unknown]
